FAERS Safety Report 5804666-0 (Version None)
Quarter: 2008Q3

REPORT INFORMATION
  Report Type: 
  Country: None (occurrence: None)
  Receive Date: 20080709
  Receipt Date: 20080703
  Transmission Date: 20090109
  Serious: Yes (Hospitalization)
  Sender: FDA-Public Use
  Company Number: JP-BRISTOL-MYERS SQUIBB COMPANY-14252829

PATIENT
  Age: 83 Year
  Sex: Female

DRUGS (8)
  1. MEVALOTIN [Suspect]
     Indication: HYPERLIPIDAEMIA
     Route: 048
     Dates: end: 20080618
  2. ACECOL [Suspect]
     Indication: HYPERTENSION
     Route: 048
     Dates: end: 20080618
  3. LOXONIN [Suspect]
     Indication: BACK PAIN
     Route: 048
  4. FAMOTIDINE [Suspect]
  5. BONALON [Suspect]
  6. JUVELA N [Concomitant]
  7. CONIEL [Concomitant]
  8. MUCOSTA [Concomitant]

REACTIONS (1)
  - LEUKOPENIA [None]
